FAERS Safety Report 18907067 (Version 1)
Quarter: 2021Q1

REPORT INFORMATION
  Report Type: Spontaneous
  Country: US (occurrence: US)
  Receive Date: 20210217
  Receipt Date: 20210217
  Transmission Date: 20210420
  Serious: Yes (Other)
  Sender: FDA-Public Use
  Company Number: US-NOVEN PHARMACEUTICALS, INC.-2020US009333

PATIENT
  Age: 7 Year
  Sex: Male
  Weight: 22.68 kg

DRUGS (3)
  1. QUETIAPINE. [Concomitant]
     Active Substance: QUETIAPINE
     Indication: SLEEP DISORDER
     Dosage: 25MG, ORAL, TAKES 2 NIGHTLY
     Route: 062
  2. CITALOPRAM [Concomitant]
     Active Substance: CITALOPRAM HYDROBROMIDE
     Indication: PRODUCT USED FOR UNKNOWN INDICATION
     Dosage: 5MG ORAL LIQUID
     Route: 048
  3. DAYTRANA [Suspect]
     Active Substance: METHYLPHENIDATE
     Indication: ATTENTION DEFICIT HYPERACTIVITY DISORDER
     Dosage: 30MG/9 HOURS, 1 PATCH DAILY
     Route: 062
     Dates: start: 202003

REACTIONS (13)
  - Application site urticaria [Recovering/Resolving]
  - Therapeutic product ineffective [Not Recovered/Not Resolved]
  - Application site reaction [Recovering/Resolving]
  - Application site erythema [Not Recovered/Not Resolved]
  - Application site erythema [Recovering/Resolving]
  - Application site vesicles [Recovering/Resolving]
  - Application site pruritus [Recovering/Resolving]
  - Product administered at inappropriate site [Unknown]
  - Product quality issue [Unknown]
  - Application site pain [Recovering/Resolving]
  - Application site irritation [Recovering/Resolving]
  - Product adhesion issue [Not Recovered/Not Resolved]
  - Application site laceration [Recovering/Resolving]

NARRATIVE: CASE EVENT DATE: 2020
